FAERS Safety Report 15286181 (Version 9)
Quarter: 2019Q3

REPORT INFORMATION
  Report Type: Report from Study
  Country: IN (occurrence: IN)
  Receive Date: 20180816
  Receipt Date: 20190801
  Transmission Date: 20191004
  Serious: Yes (Hospitalization)
  Sender: FDA-Public Use
  Company Number: IN-PFIZER INC-2018319515

PATIENT
  Age: 54 Year
  Sex: Female
  Weight: 36.6 kg

DRUGS (3)
  1. XALKORI [Suspect]
     Active Substance: CRIZOTINIB
     Dosage: 200 MG, CYCLIC TWICE DAILY
     Route: 048
     Dates: start: 20180615
  2. XALKORI [Suspect]
     Active Substance: CRIZOTINIB
     Dosage: 200 MG, CYCLIC TWICE DAILY
     Route: 048
     Dates: start: 20180528, end: 20180805
  3. XALKORI [Suspect]
     Active Substance: CRIZOTINIB
     Indication: NON-SMALL CELL LUNG CANCER
     Dosage: 250 MG, TWICE DAILY, CYCLIC
     Route: 048
     Dates: start: 20180420

REACTIONS (2)
  - Gastroenteritis [Recovered/Resolved]
  - Pulmonary embolism [Recovered/Resolved]

NARRATIVE: CASE EVENT DATE: 20180806
